FAERS Safety Report 4848954-3 (Version None)
Quarter: 2005Q4

REPORT INFORMATION
  Report Type: 
  Country: None (occurrence: None)
  Receive Date: 20051208
  Receipt Date: 20051129
  Transmission Date: 20060501
  Serious: Yes (Death)
  Sender: FDA-Public Use
  Company Number: DE-MERCK-0512DEU00003

PATIENT
  Age: 66 Year
  Sex: Male

DRUGS (5)
  1. CANCIDAS [Suspect]
     Indication: SYSTEMIC CANDIDA
     Route: 042
  2. CANCIDAS [Suspect]
     Route: 042
  3. AMPHOTERICIN B [Suspect]
     Route: 065
  4. AMPHOTERICIN B [Suspect]
     Route: 065
  5. VORICONAZOLE [Suspect]
     Route: 065

REACTIONS (10)
  - ASPERGILLOSIS [None]
  - MULTI-ORGAN FAILURE [None]
  - PLEURAL EFFUSION [None]
  - PNEUMONIA [None]
  - PULMONARY HAEMORRHAGE [None]
  - RENAL FAILURE [None]
  - RESPIRATORY FAILURE [None]
  - SEPTIC SHOCK [None]
  - SYSTEMIC CANDIDA [None]
  - THERAPY NON-RESPONDER [None]
